FAERS Safety Report 4475397-7 (Version None)
Quarter: 2004Q4

REPORT INFORMATION
  Report Type: 
  Country: None (occurrence: None)
  Receive Date: 20041015
  Receipt Date: 20041004
  Transmission Date: 20050328
  Serious: Yes (Hospitalization)
  Sender: FDA-Public Use
  Company Number: DE-ABBOTT-04P-062-0276393-00

PATIENT
  Sex: Male
  Weight: 63 kg

DRUGS (1)
  1. KLACID [Suspect]
     Indication: NASOPHARYNGITIS
     Route: 048
     Dates: start: 20040802

REACTIONS (2)
  - DIFFICULTY IN WALKING [None]
  - POLYNEUROPATHY [None]
